FAERS Safety Report 6436502-6 (Version None)
Quarter: 2009Q4

REPORT INFORMATION
  Report Type: 
  Country: None (occurrence: None)
  Receive Date: 20091111
  Receipt Date: 20091029
  Transmission Date: 20100525
  Serious: Yes (Other)
  Sender: FDA-Public Use
  Company Number: NO-ELI_LILLY_AND_COMPANY-NO200909002105

PATIENT
  Age: 31 Year
  Sex: Female

DRUGS (4)
  1. ZYPREXA [Suspect]
     Indication: MANIA
     Dosage: 15 MG, UNKNOWN AT 19:00
     Route: 048
  2. ZYPREXA [Suspect]
     Dosage: 5 MG, UNK AT 19:45 AND 23:15
     Route: 048
  3. LORAZEPAM [Concomitant]
     Dosage: 2.5 MG, UNKNOWN
     Route: 048
  4. ZOPICLONE [Concomitant]
     Dosage: 7.5 MG, UNK AT 24:00

REACTIONS (5)
  - BLOOD PRESSURE DECREASED [None]
  - CARDIAC DISORDER [None]
  - DRUG INTERACTION [None]
  - LOSS OF CONSCIOUSNESS [None]
  - SYNCOPE [None]
